FAERS Safety Report 6823065-6 (Version None)
Quarter: 2010Q3

REPORT INFORMATION
  Report Type: 
  Country: None (occurrence: None)
  Receive Date: 20100708
  Receipt Date: 20100706
  Transmission Date: 20110219
  Serious: Yes (Death, Hospitalization)
  Sender: FDA-Public Use
  Company Number: Z0004110A

PATIENT
  Sex: Female
  Weight: 53 kg

DRUGS (1)
  1. CHLORAMBUCIL [Suspect]
     Route: 048
     Dates: start: 20100420

REACTIONS (3)
  - DIARRHOEA [None]
  - FEBRILE INFECTION [None]
  - PHARYNGITIS [None]
